FAERS Safety Report 5652991-9 (Version None)
Quarter: 2008Q1

REPORT INFORMATION
  Report Type: 
  Country: None (occurrence: None)
  Receive Date: 20080306
  Receipt Date: 20080303
  Transmission Date: 20080703
  Serious: Yes (Hospitalization)
  Sender: FDA-Public Use
  Company Number: HK-AVENTIS-200810955EU

PATIENT
  Age: 52 Year
  Sex: Male

DRUGS (7)
  1. CLEXANE [Suspect]
     Route: 058
  2. ASPIRIN [Concomitant]
  3. ISOSORBIDE DINITRATE [Concomitant]
  4. AUGMENTIN '125' [Concomitant]
  5. CEFTRIAXONE [Concomitant]
  6. AZITHROMYCIN [Concomitant]
  7. DOXYCYCLINE [Concomitant]

REACTIONS (1)
  - SUBDURAL HAEMATOMA [None]
